FAERS Safety Report 9630245 (Version 2)
Quarter: 2013Q4

REPORT INFORMATION
  Report Type: Report from Study
  Country: CL (occurrence: CL)
  Receive Date: 20131017
  Receipt Date: 20131018
  Transmission Date: 20140711
  Serious: Yes (Hospitalization, Other)
  Sender: FDA-Public Use
  Company Number: PHHY2013CL116708

PATIENT
  Age: 81 Year
  Sex: Female

DRUGS (2)
  1. EXFORGE [Suspect]
     Indication: HYPERTENSION
     Dosage: UNK (80/5 MG), UNK
     Route: 048
  2. CARDIOASPIRINA [Concomitant]

REACTIONS (8)
  - Cerebral thrombosis [Recovered/Resolved]
  - Aphasia [Recovered/Resolved]
  - Speech disorder [Recovered/Resolved]
  - Fall [Recovering/Resolving]
  - Head injury [Recovering/Resolving]
  - Headache [Not Recovered/Not Resolved]
  - Nervousness [Recovered/Resolved]
  - Skin discolouration [Recovering/Resolving]
